FAERS Safety Report 9576712 (Version 1)
Quarter: 2013Q4

REPORT INFORMATION
  Report Type: Spontaneous
  Country: US (occurrence: US)
  Receive Date: 20131001
  Receipt Date: 20131001
  Transmission Date: 20140711
  Serious: No
  Sender: FDA-Public Use
  Company Number: US-AMGEN-USASP2013004224

PATIENT
  Age: 41 Year
  Sex: Male
  Weight: 113.38 kg

DRUGS (9)
  1. ENBREL [Suspect]
     Indication: RHEUMATOID ARTHRITIS
     Dosage: 50 MG, Q2WK
     Route: 058
     Dates: start: 201110, end: 201112
  2. VICODIN ES [Concomitant]
     Dosage: UNK
  3. ARAVA [Concomitant]
     Dosage: UNK
  4. PROTONIX [Concomitant]
     Dosage: UNK
  5. METHOTREXATE [Concomitant]
     Dosage: UNK
  6. VITAMIN B 12 [Concomitant]
     Dosage: UNK
  7. FOLIC ACID [Concomitant]
     Dosage: UNK
  8. TRAMADOL [Concomitant]
     Dosage: UNK
  9. HUMIRA [Concomitant]
     Dosage: UNK

REACTIONS (3)
  - Headache [Not Recovered/Not Resolved]
  - Nausea [Not Recovered/Not Resolved]
  - Vomiting [Not Recovered/Not Resolved]
